FAERS Safety Report 5421231-8 (Version None)
Quarter: 2007Q3

REPORT INFORMATION
  Report Type: 
  Country: None (occurrence: None)
  Receive Date: 20070719
  Receipt Date: 20060823
  Transmission Date: 20080115
  Serious: Yes (Hospitalization)
  Sender: FDA-Public Use
  Company Number: OMPQ-PR-0608S-1285

PATIENT
  Age: 42 Year
  Sex: Male

DRUGS (3)
  1. OMNIPAQUE 140 [Suspect]
     Indication: PAIN IN EXTREMITY
     Dosage: 11ML, SINGLE DOSE, I.T.
     Route: 037
     Dates: start: 20060818, end: 20060818
  2. VALIUM [Concomitant]
  3. PHENOBARBITAL TAB [Concomitant]

REACTIONS (1)
  - MENINGITIS CHEMICAL [None]
